FAERS Safety Report 4720847-1 (Version None)
Quarter: 2005Q3

REPORT INFORMATION
  Report Type: 
  Country: None (occurrence: None)
  Receive Date: 20050721
  Receipt Date: 20050712
  Transmission Date: 20060218
  Serious: Yes (Death)
  Sender: FDA-Public Use
  Company Number: 200512075JP

PATIENT
  Sex: 0

DRUGS (2)
  1. TAXOTERE [Suspect]
     Route: 041
     Dates: start: 20050401, end: 20050501
  2. GEMZAR [Concomitant]
     Dates: start: 20050401, end: 20050501

REACTIONS (1)
  - INTERSTITIAL LUNG DISEASE [None]
